FAERS Safety Report 8956898 (Version 1)
Quarter: 2012Q4

REPORT INFORMATION
  Report Type: 
  Country: US (occurrence: US)
  Receive Date: 20121210
  Receipt Date: 20121210
  Transmission Date: 20130627
  Serious: No
  Sender: FDA-Public Use
  Company Number: US-BAYER-2012-128337

PATIENT
  Age: 45 Year
  Sex: Male
  Weight: 77 kg

DRUGS (2)
  1. ALEVE CAPLET/TABLET,MIDOL EXTENDED RELIEF CAPLET [Suspect]
  2. GOODY^S POWDER EXTRA STRENGTH HEADACHE [Concomitant]
     Indication: HEADACHE

REACTIONS (3)
  - Overdose [None]
  - Hiccups [Recovered/Resolved]
  - Headache [Recovered/Resolved]
